FAERS Safety Report 5596334-8 (Version None)
Quarter: 2008Q1

REPORT INFORMATION
  Report Type: 
  Country: None (occurrence: None)
  Receive Date: 20080118
  Receipt Date: 20080117
  Transmission Date: 20080703
  Serious: Yes (Other)
  Sender: FDA-Public Use
  Company Number: ES-MERCK-0801ESP00012

PATIENT
  Age: 87 Year
  Sex: Female

DRUGS (5)
  1. INVANZ [Suspect]
     Indication: KLEBSIELLA INFECTION
     Route: 042
     Dates: start: 20071127, end: 20071203
  2. HALOPERIDOL [Concomitant]
     Indication: PROPHYLAXIS AGAINST PSYCHOMOTOR AGITATION
     Route: 048
     Dates: start: 20060101
  3. ASPIRIN [Concomitant]
     Indication: VASCULAR ENCEPHALOPATHY
     Route: 048
     Dates: start: 20061222
  4. ALPRAZOLAM [Concomitant]
     Indication: ANXIETY
     Route: 048
     Dates: start: 20071003
  5. OMEPRAZOLE [Concomitant]
     Indication: PROPHYLAXIS AGAINST GASTROINTESTINAL ULCER
     Route: 048
     Dates: start: 20060206

REACTIONS (1)
  - VAGINAL HAEMORRHAGE [None]
